FAERS Safety Report 18498569 (Version 5)
Quarter: 2021Q3

REPORT INFORMATION
  Report Type: Report from Study
  Country: US (occurrence: US)
  Receive Date: 20201112
  Receipt Date: 20210824
  Transmission Date: 20211014
  Serious: No
  Sender: FDA-Public Use
  Company Number: NVSC2020US297113

PATIENT
  Age: 49 Year
  Sex: Female

DRUGS (3)
  1. ADAKVEO [Suspect]
     Active Substance: CRIZANLIZUMAB-TMCA
     Dosage: UNK
     Route: 042
     Dates: start: 20200916, end: 20210304
  2. ADAKVEO [Suspect]
     Active Substance: CRIZANLIZUMAB-TMCA
     Indication: SICKLE CELL DISEASE
     Dosage: UNK
     Route: 042
     Dates: start: 20200916, end: 20201014
  3. ADAKVEO [Suspect]
     Active Substance: CRIZANLIZUMAB-TMCA
     Dosage: UNK (SOLUTION)
     Route: 042
     Dates: start: 20200916, end: 20210729

REACTIONS (3)
  - Arthralgia [Unknown]
  - Sleep disorder [Unknown]
  - Peripheral swelling [Unknown]

NARRATIVE: CASE EVENT DATE: 20201025
